FAERS Safety Report 25503985 (Version 1)
Quarter: 2025Q2

REPORT INFORMATION
  Report Type: Spontaneous
  Country: US (occurrence: None)
  Receive Date: 20250630
  Receipt Date: 20250630
  Transmission Date: 20250717
  Serious: Yes (Hospitalization)
  Sender: FDA-CTU
  Company Number: None

PATIENT
  Age: 80 Year
  Sex: Female

DRUGS (11)
  1. ORENCIA [Suspect]
     Active Substance: ABATACEPT
     Indication: Rheumatoid arthritis
     Dosage: FREQUENCY : WEEKLY;?
     Route: 058
     Dates: start: 20221108
  2. NITROFURANTOIN [Concomitant]
     Active Substance: NITROFURANTOIN
  3. METFORMIN [Concomitant]
     Active Substance: METFORMIN HYDROCHLORIDE
  4. MONTELUKAST SODIUM [Concomitant]
     Active Substance: MONTELUKAST SODIUM
  5. Ipratropium 0.03% nasal spray [Concomitant]
  6. Amox-Clav 875/125mg tablets [Concomitant]
  7. mucus relief DM 30/600 [Concomitant]
  8. PREDNISONE [Concomitant]
     Active Substance: PREDNISONE
  9. BENZONATATE [Concomitant]
     Active Substance: BENZONATATE
  10. ROSUVASTATIN [Concomitant]
     Active Substance: ROSUVASTATIN
  11. PREGABALIN [Concomitant]
     Active Substance: PREGABALIN

REACTIONS (2)
  - Encephalitis [None]
  - Infection [None]

NARRATIVE: CASE EVENT DATE: 20250430
